FAERS Safety Report 7438119-3 (Version None)
Quarter: 2011Q2

REPORT INFORMATION
  Report Type: 
  Country: None (occurrence: None)
  Receive Date: 20110426
  Receipt Date: 20110418
  Transmission Date: 20111010
  Serious: Yes (Other)
  Sender: FDA-Public Use
  Company Number: JP-BRISTOL-MYERS SQUIBB COMPANY-15692395

PATIENT
  Age: 67 Year
  Sex: Male

DRUGS (5)
  1. SAXAGLIPTIN [Suspect]
     Indication: TYPE 2 DIABETES MELLITUS
     Dosage: TABS
     Route: 048
     Dates: start: 20100927, end: 20110405
  2. URSO 250 [Concomitant]
     Dosage: TAB
     Dates: start: 20101025
  3. AMARYL [Concomitant]
     Dosage: TAB
     Dates: start: 20100610
  4. AZUNOL [Concomitant]
     Dosage: AZUNOL ST
     Dates: start: 20110221
  5. HERBAL MIXTURE [Concomitant]
     Dosage: TAISHO KANPO ICHUUYAKU
     Dates: start: 20110314, end: 20110317

REACTIONS (1)
  - PANCREATITIS ACUTE [None]
